FAERS Safety Report 9768427 (Version 1)
Quarter: 2013Q4

REPORT INFORMATION
  Report Type: Spontaneous
  Country: US (occurrence: US)
  Receive Date: 20131217
  Receipt Date: 20131217
  Transmission Date: 20140711
  Serious: Yes (Other)
  Sender: FDA-Public Use
  Company Number: US-TEVA-451308USA

PATIENT
  Age: 26 Year
  Sex: Female
  Weight: 113.5 kg

DRUGS (2)
  1. PARAGARD 380A [Suspect]
     Indication: CONTRACEPTION
     Dates: start: 20101120, end: 20131212
  2. VITAMINS [Concomitant]

REACTIONS (3)
  - Pregnancy with contraceptive device [Not Recovered/Not Resolved]
  - Drug ineffective [Unknown]
  - Menstruation delayed [Not Recovered/Not Resolved]
